FAERS Safety Report 4783971-3 (Version None)
Quarter: 2005Q3

REPORT INFORMATION
  Report Type: 
  Country: None (occurrence: None)
  Receive Date: 20050927
  Receipt Date: 20050804
  Transmission Date: 20060218
  Serious: No
  Sender: FDA-Public Use
  Company Number: USA0508104597

PATIENT
  Age: 37 Year
  Sex: Female

DRUGS (2)
  1. STRATTERA [Suspect]
     Indication: ATTENTION DEFICIT/HYPERACTIVITY DISORDER
     Dosage: 18 MG DAY
     Dates: start: 20050803
  2. WELLBUTRIN [Concomitant]

REACTIONS (5)
  - ANOREXIA [None]
  - DEPRESSION [None]
  - INSOMNIA [None]
  - LETHARGY [None]
  - SOMNOLENCE [None]
